FAERS Safety Report 17002428 (Version 1)
Quarter: 2019Q4

REPORT INFORMATION
  Report Type: Spontaneous
  Country: IT (occurrence: IT)
  Receive Date: 20191107
  Receipt Date: 20191107
  Transmission Date: 20200122
  Serious: No
  Sender: FDA-Public Use
  Company Number: IT-LUPIN PHARMACEUTICALS INC.-2019-00559

PATIENT
  Age: 54 Year
  Sex: Female

DRUGS (6)
  1. DULOXETINE. [Suspect]
     Active Substance: DULOXETINE
     Indication: DEPRESSION
     Dosage: 60 MG, QD
     Route: 065
     Dates: start: 201301
  2. DULOXETINE. [Suspect]
     Active Substance: DULOXETINE
     Indication: BURNING MOUTH SYNDROME
  3. DULOXETINE. [Suspect]
     Active Substance: DULOXETINE
     Indication: ORAL LICHEN PLANUS
  4. L-THYROXIN                         /00068001/ [Concomitant]
     Active Substance: LEVOTHYROXINE
     Indication: HYPOTHYROIDISM
     Dosage: UNK
     Route: 065
  5. CLONAZEPAM. [Suspect]
     Active Substance: CLONAZEPAM
     Indication: ORAL LICHEN PLANUS
  6. CLONAZEPAM. [Suspect]
     Active Substance: CLONAZEPAM
     Indication: BURNING MOUTH SYNDROME
     Dosage: UNK
     Route: 061

REACTIONS (1)
  - Dizziness [Unknown]

NARRATIVE: CASE EVENT DATE: 2013
